FAERS Safety Report 8155281-8 (Version None)
Quarter: 2012Q1

REPORT INFORMATION
  Report Type: 
  Country: None (occurrence: None)
  Receive Date: 20120222
  Receipt Date: 20120213
  Transmission Date: 20120608
  Serious: No
  Sender: FDA-Public Use
  Company Number: US-BIOGENIDEC-2012BI005727

PATIENT
  Age: 59 Year
  Sex: Female

DRUGS (1)
  1. TYSABRI [Suspect]
     Indication: MULTIPLE SCLEROSIS
     Route: 042
     Dates: start: 20120209

REACTIONS (15)
  - INFLUENZA LIKE ILLNESS [None]
  - HEADACHE [None]
  - OROPHARYNGEAL PAIN [None]
  - PAIN [None]
  - FLUSHING [None]
  - BALANCE DISORDER [None]
  - PRODUCTIVE COUGH [None]
  - PRURITUS [None]
  - RASH [None]
  - DISSOCIATIVE DISORDER [None]
  - PYREXIA [None]
  - POLLAKIURIA [None]
  - GAIT DISTURBANCE [None]
  - FATIGUE [None]
  - ASTHENIA [None]
